FAERS Safety Report 23157935 (Version 2)
Quarter: 2024Q1

REPORT INFORMATION
  Report Type: Spontaneous
  Country: US (occurrence: US)
  Receive Date: 20231108
  Receipt Date: 20240201
  Transmission Date: 20240410
  Serious: Yes (Death, Hospitalization, Other)
  Sender: FDA-Public Use
  Company Number: US-BRISTOL-MYERS SQUIBB COMPANY-2023-154635

PATIENT
  Age: 81 Year
  Sex: Female

DRUGS (2)
  1. OPDIVO [Suspect]
     Active Substance: NIVOLUMAB
     Indication: Renal cancer
     Dosage: DOSE : OPDIVO: 240MG  YERVOY: 85MG;     FREQ : EVERY 3 WEEKS, ROUTE OF ADMINISTRATION : IV INFUSION
  2. YERVOY [Suspect]
     Active Substance: IPILIMUMAB
     Indication: Renal cancer
     Dosage: DOSE : OPDIVO: 240MG  YERVOY: 85MG;     FREQ : EVERY 3 WEEKS, ROUTE OF ADMINISTRATION : IV INFUSION

REACTIONS (3)
  - Death [Fatal]
  - Hospitalisation [Unknown]
  - Off label use [Unknown]

NARRATIVE: CASE EVENT DATE: 20231014
